FAERS Safety Report 10376545 (Version 1)
Quarter: 2014Q3

REPORT INFORMATION
  Report Type: Spontaneous
  Country: US (occurrence: None)
  Receive Date: 20140807
  Receipt Date: 20140807
  Transmission Date: 20150326
  Serious: Yes (Other)
  Sender: FDA-Public Use
  Company Number: 2014070089

PATIENT
  Sex: Female
  Weight: 58.06 kg

DRUGS (2)
  1. SYNTHROID [Concomitant]
     Active Substance: LEVOTHYROXINE SODIUM
  2. PREFERAOB + DHA [Suspect]
     Active Substance: VITAMINS
     Indication: SUPPLEMENTATION THERAPY
     Route: 048
     Dates: start: 201205, end: 20130430

REACTIONS (3)
  - Placental disorder [None]
  - Maternal exposure during pregnancy [None]
  - Haemorrhage in pregnancy [None]

NARRATIVE: CASE EVENT DATE: 2012
